FAERS Safety Report 8355313-8 (Version None)
Quarter: 2012Q2

REPORT INFORMATION
  Report Type: 
  Country: None (occurrence: None)
  Receive Date: 20120511
  Receipt Date: 20110324
  Transmission Date: 20120825
  Serious: No
  Sender: FDA-Public Use
  Company Number: US-TEVA-2011001398

PATIENT
  Sex: Female
  Weight: 54.48 kg

DRUGS (4)
  1. NUVIGIL [Suspect]
     Indication: FIBROMYALGIA
     Dosage: 50 MILLIGRAM;
     Route: 048
     Dates: start: 20110318, end: 20110319
  2. AMBIEN [Concomitant]
     Dates: start: 20100601
  3. CYMBALTA [Concomitant]
     Dates: start: 20101217
  4. KLONOPIN [Concomitant]
     Dates: start: 20090101

REACTIONS (2)
  - RASH PRURITIC [None]
  - RASH ERYTHEMATOUS [None]
